FAERS Safety Report 21043554 (Version 1)
Quarter: 2022Q3

REPORT INFORMATION
  Report Type: Spontaneous
  Country: US (occurrence: US)
  Receive Date: 20220705
  Receipt Date: 20220705
  Transmission Date: 20221026
  Serious: No
  Sender: FDA-Public Use
  Company Number: US-SAREPTA THERAPEUTICS INC.-SRP2021-001934

PATIENT
  Age: 21 Year
  Sex: Male
  Weight: 49.89 kg

DRUGS (6)
  1. EXONDYS 51 [Suspect]
     Active Substance: ETEPLIRSEN
     Indication: Duchenne muscular dystrophy
     Dosage: 1400 MILLIGRAM, WEEKLY
     Route: 042
     Dates: start: 20190111, end: 20211223
  2. EXONDYS 51 [Suspect]
     Active Substance: ETEPLIRSEN
     Dosage: 1400 MILLIGRAM, WEEKLY
     Route: 042
     Dates: start: 20220107, end: 20220107
  3. VITAMIN D3 [Concomitant]
     Active Substance: CHOLECALCIFEROL
     Indication: Osteoporosis prophylaxis
     Dosage: 50 MICROGRAM, QD
     Route: 048
     Dates: start: 20191025
  4. EMFLAZA [Concomitant]
     Active Substance: DEFLAZACORT
     Indication: Duchenne muscular dystrophy
     Dosage: 45 MILLIGRAM, QD
     Route: 048
     Dates: start: 20201116
  5. LISINOPRIL [Concomitant]
     Active Substance: LISINOPRIL
     Indication: Blood pressure management
     Dosage: 10 MILLIGRAM, QD
     Route: 048
     Dates: start: 20200928
  6. XOPENEX [Concomitant]
     Active Substance: LEVALBUTEROL HYDROCHLORIDE
     Indication: Respiratory distress
     Dosage: 2 PUFFS, Q4H, PRN
     Dates: start: 20200903

REACTIONS (5)
  - Chills [Recovered/Resolved]
  - Swelling face [Recovered/Resolved]
  - Rash vesicular [Recovered/Resolved]
  - Rash pruritic [Recovered/Resolved]
  - COVID-19 [Recovered/Resolved]

NARRATIVE: CASE EVENT DATE: 20211201
